FAERS Safety Report 5622112-7 (Version None)
Quarter: 2008Q1

REPORT INFORMATION
  Report Type: 
  Country: None (occurrence: None)
  Receive Date: 20080211
  Receipt Date: 20080206
  Transmission Date: 20080703
  Serious: Yes (Hospitalization, Other)
  Sender: FDA-Public Use
  Company Number: AT-BRISTOL-MYERS SQUIBB COMPANY-14057558

PATIENT
  Age: 70 Year
  Sex: Female

DRUGS (4)
  1. CETUXIMAB [Suspect]
     Indication: COLORECTAL CANCER METASTATIC
     Dosage: STRENGTH 2MG/ML. MOST RECENT INFUSION ON 22-OCT-2007.
     Route: 041
     Dates: start: 20071002
  2. OXALIPLATIN [Suspect]
     Indication: COLORECTAL CANCER METASTATIC
     Dosage: MOST RECENT INFUSION ON 22-OCT-2007.
     Route: 042
     Dates: start: 20071002
  3. FLUOROURACIL [Suspect]
     Indication: COLORECTAL CANCER METASTATIC
     Dosage: INFUSIONS ADMINISTERED ON 22-OCT-2007 AND 22-JAN-2008.
     Route: 042
     Dates: start: 20071002
  4. FOLINIC ACID [Suspect]
     Indication: COLORECTAL CANCER METASTATIC
     Dosage: INFUSIONS ADMINISTERED ON 22-OCT-2007 AND 22-JAN-2008.
     Route: 042
     Dates: start: 20071002

REACTIONS (3)
  - DIARRHOEA [None]
  - FEBRILE NEUTROPENIA [None]
  - LEUKOPENIA [None]
